FAERS Safety Report 5010934-5 (Version None)
Quarter: 2006Q2

REPORT INFORMATION
  Report Type: 
  Country: None (occurrence: None)
  Receive Date: 20060525
  Receipt Date: 19980318
  Transmission Date: 20061013
  Serious: Yes (Other)
  Sender: FDA-Public Use
  Company Number: DE-BRISTOL-MYERS SQUIBB COMPANY-13385000

PATIENT
  Age: 54 Year
  Sex: Female
  Weight: 80 kg

DRUGS (2)
  1. TAXOL [Suspect]
     Indication: OVARIAN CANCER
     Route: 042
     Dates: start: 19970521, end: 19970611
  2. CARBOPLATIN [Suspect]
     Indication: OVARIAN CANCER
     Dates: start: 19970521, end: 19970611

REACTIONS (2)
  - EYELID PTOSIS [None]
  - PARAESTHESIA [None]
